FAERS Safety Report 10768672 (Version 1)
Quarter: 2015Q1

REPORT INFORMATION
  Report Type: Spontaneous
  Country: US (occurrence: None)
  Receive Date: 20150205
  Receipt Date: 20150205
  Transmission Date: 20150721
  Serious: Yes (Hospitalization)
  Sender: FDA-Public Use
  Company Number: None

PATIENT
  Age: 91 Year
  Sex: Male
  Weight: 71.5 kg

DRUGS (16)
  1. LISINOPRIL. [Suspect]
     Active Substance: LISINOPRIL
     Indication: HYPERTENSION
     Route: 048
  2. ECOTRIN [Concomitant]
     Active Substance: ASPIRIN
  3. COLACE [Concomitant]
     Active Substance: DOCUSATE SODIUM
  4. LEXAPRO [Concomitant]
     Active Substance: ESCITALOPRAM OXALATE
  5. PRILOSEC [Concomitant]
     Active Substance: OMEPRAZOLE MAGNESIUM
  6. MAALOX ANTACID [Concomitant]
     Active Substance: ALUMINUM HYDROXIDE\DIMETHICONE\MAGNESIUM HYDROXIDE
  7. ATIVAN [Concomitant]
     Active Substance: LORAZEPAM
  8. BACTRIM DS [Suspect]
     Active Substance: SULFAMETHOXAZOLE\TRIMETHOPRIM
     Indication: SKIN INFECTION
     Dosage: 1 TABLET
     Route: 048
  9. CA CARB + VIT D [Concomitant]
  10. ROBITUSSIN (GUAIFENESIN) [Concomitant]
     Active Substance: GUAIFENESIN
  11. AMLODIPINE [Concomitant]
     Active Substance: AMLODIPINE BESYLATE
  12. APAP [Concomitant]
     Active Substance: ACETAMINOPHEN
  13. IMODIUM [Concomitant]
     Active Substance: LOPERAMIDE HYDROCHLORIDE
  14. DEPAKOTE [Concomitant]
     Active Substance: DIVALPROEX SODIUM
  15. LOXITANE [Concomitant]
     Active Substance: LOXAPINE SUCCINATE
  16. FLOMAX [Concomitant]
     Active Substance: TAMSULOSIN HYDROCHLORIDE

REACTIONS (1)
  - Angioedema [None]

NARRATIVE: CASE EVENT DATE: 20141118
